FAERS Safety Report 6590621-2 (Version None)
Quarter: 2010Q1

REPORT INFORMATION
  Report Type: 
  Country: None (occurrence: None)
  Receive Date: 20100219
  Receipt Date: 20100219
  Transmission Date: 20100710
  Serious: Yes (Other)
  Sender: FDA-Public Use
  Company Number: A0843067A

PATIENT
  Sex: Male
  Weight: 68.4 kg

DRUGS (4)
  1. PAZOPANIB [Suspect]
     Indication: SARCOMA
     Dosage: 800MG PER DAY
     Route: 048
     Dates: start: 20091015, end: 20100107
  2. BLOPRESS [Concomitant]
     Indication: HYPERTENSION
     Dosage: 12MG PER DAY
     Route: 048
     Dates: start: 20091009
  3. ARTIST [Concomitant]
     Indication: HYPERTENSION
     Dosage: 2.5MG PER DAY
     Route: 048
     Dates: start: 20090918
  4. AMLODIPINE [Concomitant]
     Indication: HYPERTENSION
     Dosage: 2.5MG PER DAY
     Route: 048
     Dates: start: 20091019

REACTIONS (1)
  - LEFT VENTRICULAR DYSFUNCTION [None]
